FAERS Safety Report 11081874 (Version 1)
Quarter: 2015Q2

REPORT INFORMATION
  Report Type: Report from Study
  Country: CO (occurrence: CO)
  Receive Date: 20150501
  Receipt Date: 20150501
  Transmission Date: 20150821
  Serious: Yes (Death, Hospitalization, Other)
  Sender: FDA-Public Use
  Company Number: PHHY2015CO052523

PATIENT
  Sex: Female

DRUGS (1)
  1. AFINITOR [Suspect]
     Active Substance: EVEROLIMUS
     Indication: BREAST CANCER
     Dosage: 1 DF, QD
     Dates: end: 201408

REACTIONS (9)
  - Metastases to lung [Unknown]
  - Breast haemorrhage [Unknown]
  - Immune system disorder [Unknown]
  - Malaise [Unknown]
  - Pulmonary oedema [Unknown]
  - Migraine [Unknown]
  - Pyrexia [Unknown]
  - Malignant neoplasm progression [Fatal]
  - Haemoglobin decreased [Unknown]
